FAERS Safety Report 19789844 (Version 1)
Quarter: 2021Q3

REPORT INFORMATION
  Report Type: Spontaneous
  Country: US (occurrence: US)
  Receive Date: 20210904
  Receipt Date: 20210904
  Transmission Date: 20211014
  Serious: Yes (Other)
  Sender: FDA-Public Use
  Company Number: US-TEVA-2021-US-1948871

PATIENT
  Sex: Female

DRUGS (1)
  1. ZEBETA [Suspect]
     Active Substance: BISOPROLOL FUMARATE
     Route: 065

REACTIONS (2)
  - Renal impairment [Unknown]
  - Urinary tract disorder [Unknown]
